FAERS Safety Report 17214008 (Version 1)
Quarter: 2019Q4

REPORT INFORMATION
  Report Type: Spontaneous
  Country: US (occurrence: US)
  Receive Date: 20191230
  Receipt Date: 20191230
  Transmission Date: 20200122
  Serious: Yes (Hospitalization)
  Sender: FDA-Public Use
  Company Number: US-CELGENEUS-USA-20191209428

PATIENT
  Age: 72 Year
  Sex: Male
  Weight: 79.45 kg

DRUGS (21)
  1. DIPHENHYDRAMINE. [Concomitant]
     Active Substance: DIPHENHYDRAMINE
     Indication: INFUSION RELATED REACTION
     Dosage: 25 MILLIGRAM
     Route: 041
     Dates: start: 20191117, end: 20191117
  2. BOLUS ADSTRINGENS [Concomitant]
     Indication: FLUID REPLACEMENT
     Dosage: 1000 MILLIGRAM
     Route: 041
     Dates: start: 20191117
  3. SIROLIMUS. [Concomitant]
     Active Substance: SIROLIMUS
     Indication: PROPHYLAXIS
     Dosage: .5 MILLIGRAM
     Route: 048
     Dates: start: 20191104
  4. VENETOCLAX. [Suspect]
     Active Substance: VENETOCLAX
     Indication: ACUTE MYELOID LEUKAEMIA
     Dosage: 600 MILLIGRAM
     Route: 048
     Dates: start: 20191203
  5. PETHIDINE [Concomitant]
     Active Substance: MEPERIDINE
     Indication: BACK PAIN
     Dosage: 12.5 MILLIGRAM
     Route: 041
     Dates: start: 20191117
  6. INSULIN DETEMIR [Concomitant]
     Active Substance: INSULIN DETEMIR
     Indication: TYPE 2 DIABETES MELLITUS
     Dosage: 20 UNIT
     Route: 058
     Dates: start: 20181017
  7. INSULIN ASPART [Concomitant]
     Active Substance: INSULIN ASPART
     Indication: TYPE 2 DIABETES MELLITUS
     Dosage: 300 UNIT
     Route: 058
     Dates: start: 20191024
  8. TACROLIMUS. [Concomitant]
     Active Substance: TACROLIMUS
     Indication: IMMUNOSUPPRESSION
     Dosage: 1.5 MILLIGRAM
     Route: 048
     Dates: start: 20190426
  9. PEG 3350 + ELECTROLYTE [Concomitant]
     Indication: CONSTIPATION
     Dosage: 2 PACKET
     Route: 048
  10. PANTOPRAZOLE [Concomitant]
     Active Substance: PANTOPRAZOLE
     Indication: GASTROOESOPHAGEAL REFLUX DISEASE
     Dosage: 40 MILLIGRAM
     Route: 048
     Dates: start: 20191104
  11. AZACITIDINE. [Suspect]
     Active Substance: AZACITIDINE
     Indication: ACUTE MYELOID LEUKAEMIA
     Dosage: 75 MILLIGRAM/SQ. METER
     Route: 041
     Dates: start: 20191203
  12. FENTANYL. [Concomitant]
     Active Substance: FENTANYL
     Indication: SEDATION
     Dosage: 50 MICROGRAM
     Route: 041
     Dates: start: 20191114, end: 20191114
  13. METHYLPREDNISOL SODIUM SUCCINATE [Concomitant]
     Active Substance: METHYLPREDNISOLONE SODIUM SUCCINATE
     Indication: INFUSION
     Dosage: 125 MILLIGRAM
     Route: 041
     Dates: start: 20191117, end: 20191117
  14. PREDNISONE. [Concomitant]
     Active Substance: PREDNISONE
     Indication: IMMUNOSUPPRESSION
     Dosage: 10 MILLIGRAM
     Route: 048
  15. ALLOPURINOL. [Concomitant]
     Active Substance: ALLOPURINOL
     Indication: HYPERURICAEMIA
     Dosage: 300 MILLIGRAM
     Route: 048
     Dates: start: 20191115
  16. MIDAZOLAM [Concomitant]
     Active Substance: MIDAZOLAM HYDROCHLORIDE
     Indication: ANXIETY
     Dosage: 3 MILLIGRAM
     Route: 041
     Dates: start: 20191114, end: 20191114
  17. MIDAZOLAM [Concomitant]
     Active Substance: MIDAZOLAM HYDROCHLORIDE
     Indication: PAIN
  18. FAMOTIDINE. [Concomitant]
     Active Substance: FAMOTIDINE
     Indication: GASTROOESOPHAGEAL REFLUX DISEASE
     Dosage: 20 MILLIGRAM
     Route: 041
     Dates: start: 20191117, end: 20191117
  19. LEVOFLOXACIN. [Concomitant]
     Active Substance: LEVOFLOXACIN
     Indication: INFECTION PROPHYLAXIS
     Dosage: 500 MILLIGRAM
     Route: 048
     Dates: start: 20191115
  20. DIPHENHYDRAMINE. [Concomitant]
     Active Substance: DIPHENHYDRAMINE
     Indication: INSOMNIA
     Dosage: 1 TABLET
     Route: 048
  21. ACETAMINOPHEN. [Concomitant]
     Active Substance: ACETAMINOPHEN
     Indication: INFUSION RELATED REACTION
     Dosage: 650 MILLIGRAM
     Route: 048
     Dates: start: 20191117

REACTIONS (2)
  - Transfusion reaction [Not Recovered/Not Resolved]
  - Flank pain [Not Recovered/Not Resolved]

NARRATIVE: CASE EVENT DATE: 20191213
